FAERS Safety Report 9879381 (Version 6)
Quarter: 2014Q2

REPORT INFORMATION
  Report Type: Spontaneous
  Country: JP (occurrence: JP)
  Receive Date: 20140206
  Receipt Date: 20140402
  Transmission Date: 20141212
  Serious: Yes (Death, Other)
  Sender: FDA-Public Use
  Company Number: JP-BRISTOL-MYERS SQUIBB COMPANY-20152781

PATIENT
  Age: 69 Year
  Sex: Male

DRUGS (4)
  1. ERBITUX SOLN FOR INF 5MG/ML [Suspect]
     Indication: HYPOPHARYNGEAL CANCER
     Dosage: C1D8,15:250 MG/M2?C2D1,8,10:250MG/M2,17OCT13?C3D1,8,10:250MG/M2,07NOV13?C6:14JAN2014
     Route: 041
     Dates: start: 20130926, end: 20140114
  2. CISPLATIN [Suspect]
     Indication: HYPOPHARYNGEAL CANCER
     Dosage: 26-26SEP13
     Route: 041
     Dates: start: 20130926
  3. DEXART [Suspect]
     Route: 042
     Dates: start: 20130926, end: 20140114
  4. DOCETAXEL [Concomitant]
     Indication: HYPOPHARYNGEAL CANCER
     Dosage: C2D1:17OCT13?C3D1:07NOV13?117MG*1/3WK-26SE13 TO 22NV13
     Route: 041
     Dates: start: 20130926, end: 20131122

REACTIONS (6)
  - Infectious pleural effusion [Fatal]
  - Septic shock [Fatal]
  - Renal impairment [Recovered/Resolved]
  - Dermatitis [Not Recovered/Not Resolved]
  - Mucosal inflammation [Not Recovered/Not Resolved]
  - Blood magnesium decreased [Not Recovered/Not Resolved]
